FAERS Safety Report 21259941 (Version 1)
Quarter: 2022Q3

REPORT INFORMATION
  Report Type: Spontaneous
  Country: US (occurrence: None)
  Receive Date: 20220825
  Receipt Date: 20220825
  Transmission Date: 20221027
  Serious: Yes (unspecified)
  Sender: FDA-Public Use
  Company Number: None

PATIENT
  Age: 59 Year
  Sex: Female
  Weight: 65.25 kg

DRUGS (1)
  1. YUVAFEM [Suspect]
     Active Substance: ESTRADIOL HEMIHYDRATE
     Dosage: OTHER QUANTITY : 18 TABLET(S);?FREQUENCY : DAILY;?
     Route: 067
     Dates: start: 20220510, end: 20220804

REACTIONS (2)
  - Vulvovaginal injury [None]
  - Injury associated with device [None]

NARRATIVE: CASE EVENT DATE: 20220612
